APPROVED DRUG PRODUCT: TRIAMCINOLONE ACETONIDE
Active Ingredient: TRIAMCINOLONE ACETONIDE
Strength: 0.5%
Dosage Form/Route: CREAM;TOPICAL
Application: A086413 | Product #001 | TE Code: AT
Applicant: PADAGIS US LLC
Approved: Approved Prior to Jan 1, 1982 | RLD: No | RS: No | Type: RX